FAERS Safety Report 5518933-1 (Version None)
Quarter: 2007Q4

REPORT INFORMATION
  Report Type: 
  Country: None (occurrence: None)
  Receive Date: 20071114
  Receipt Date: 20071114
  Transmission Date: 20080405
  Serious: No
  Sender: FDA-Public Use
  Company Number: None

PATIENT
  Age: 54 Year
  Sex: Female
  Weight: 83.9154 kg

DRUGS (2)
  1. FENTANYL [Suspect]
     Indication: INTERVERTEBRAL DISC DISPLACEMENT
     Dates: start: 20020501, end: 20071113
  2. FENTANYL [Suspect]
     Indication: POST LAMINECTOMY SYNDROME
     Dates: start: 20020501, end: 20071113

REACTIONS (3)
  - ANALGESIC DRUG LEVEL DECREASED [None]
  - NAUSEA [None]
  - PAIN [None]
